FAERS Safety Report 4476531-5 (Version None)
Quarter: 2004Q4

REPORT INFORMATION
  Report Type: 
  Country: None (occurrence: None)
  Receive Date: 20041013
  Receipt Date: 20040928
  Transmission Date: 20050328
  Serious: Yes (Hospitalization)
  Sender: FDA-Public Use
  Company Number: US_031299149

PATIENT
  Age: 75 Year
  Sex: Male
  Weight: 78 kg

DRUGS (22)
  1. PEMETREXED [Suspect]
     Indication: MESOTHELIOMA
     Dosage: 950 MG/OTHER
     Route: 050
     Dates: start: 20031024, end: 20031114
  2. CISPLATIN [Suspect]
     Indication: MESOTHELIOMA
     Dosage: 143 MG/OTHER
     Route: 050
     Dates: start: 20031024, end: 20031114
  3. FOLIC ACID [Concomitant]
  4. ATENOLOL [Concomitant]
  5. ZOCOR [Concomitant]
  6. IMDUR [Concomitant]
  7. GLUCOPHAGE [Concomitant]
  8. AMARYL [Concomitant]
  9. LASIX [Concomitant]
  10. DARVOCET-N 100 [Concomitant]
  11. ACETYLSALICYLIC ACID SRT [Concomitant]
  12. OMEGA - 3 FISH OIL [Concomitant]
  13. GLUCOSAMINE CHONDROITIN [Concomitant]
  14. LISINOPRIL [Concomitant]
  15. COMPAZINE [Concomitant]
  16. ROXICET [Concomitant]
  17. KYTRIL [Concomitant]
  18. DECADRON [Concomitant]
  19. SLO-MAG(MAGNESIUM CHLORIDE ANHYDROUS) [Concomitant]
  20. POTASSIUM [Concomitant]
  21. EMEND (EMEND) [Concomitant]
  22. VITAMIN B-12 [Concomitant]

REACTIONS (16)
  - ASTHENIA [None]
  - ATAXIA [None]
  - ATELECTASIS [None]
  - CEREBRAL ATROPHY [None]
  - CONFUSIONAL STATE [None]
  - DEHYDRATION [None]
  - DISEASE PROGRESSION [None]
  - ELECTROLYTE IMBALANCE [None]
  - GRAND MAL CONVULSION [None]
  - LUNG INFILTRATION [None]
  - METASTASES TO CENTRAL NERVOUS SYSTEM [None]
  - NAUSEA [None]
  - PLEURAL EFFUSION [None]
  - REFUSAL OF TREATMENT BY PATIENT [None]
  - VOMITING [None]
  - WEIGHT DECREASED [None]
